FAERS Safety Report 10922799 (Version 1)
Quarter: 2015Q1

REPORT INFORMATION
  Report Type: Spontaneous
  Country: US (occurrence: US)
  Receive Date: 20150317
  Receipt Date: 20150317
  Transmission Date: 20150721
  Serious: Yes (Other)
  Sender: FDA-Public Use
  Company Number: US-MYLANLABS-2015M1008440

PATIENT

DRUGS (4)
  1. IBUPROFEN. [Concomitant]
     Active Substance: IBUPROFEN
     Dosage: AS NEEDED
     Route: 065
  2. NAPROXEN. [Suspect]
     Active Substance: NAPROXEN
     Dosage: 250 MG
     Route: 065
  3. ASPIRIN                            /00002701/ [Concomitant]
     Active Substance: ASPIRIN
     Dosage: DAILY
     Route: 065
  4. NAPROXEN. [Suspect]
     Active Substance: NAPROXEN
     Dosage: 100MG DAILY FOR 7 DAYS, DOSE WAS INCREASED TO 250 MG
     Route: 065

REACTIONS (1)
  - Serum sickness-like reaction [Recovered/Resolved]
